FAERS Safety Report 12656880 (Version 1)
Quarter: 2016Q3

REPORT INFORMATION
  Report Type: Spontaneous
  Country: US (occurrence: US)
  Receive Date: 20160816
  Receipt Date: 20160816
  Transmission Date: 20161109
  Serious: Yes (Other)
  Sender: FDA-Public Use
  Company Number: US-BAYER-2016-151500

PATIENT
  Sex: Male

DRUGS (1)
  1. COPPERTONE KIDS SPF 70 PLUS [Suspect]
     Active Substance: AVOBENZONE\HOMOSALATE\OCTISALATE\OCTOCRYLENE\OXYBENZONE
     Dosage: APPLIED MULTIPLE TIMES
     Dates: start: 2016

REACTIONS (5)
  - Sunburn [None]
  - Erythema [None]
  - Dry skin [None]
  - Drug ineffective [None]
  - Skin exfoliation [None]

NARRATIVE: CASE EVENT DATE: 2016
